FAERS Safety Report 11789408 (Version 3)
Quarter: 2016Q1

REPORT INFORMATION
  Report Type: Spontaneous
  Country: US (occurrence: US)
  Receive Date: 20151201
  Receipt Date: 20160316
  Transmission Date: 20160525
  Serious: Yes (Hospitalization)
  Sender: FDA-Public Use
  Company Number: US-VIFOR (INTERNATIONAL) INC.-VIT-2015-03194

PATIENT
  Age: 61 Year
  Sex: Female
  Weight: 67 kg

DRUGS (2)
  1. MIRCERA [Suspect]
     Active Substance: METHOXY POLYETHYLENE GLYCOL-EPOETIN BETA
     Indication: NEPHROGENIC ANAEMIA
     Route: 040
     Dates: start: 20150625, end: 20150625
  2. HECTOROL [Concomitant]
     Active Substance: DOXERCALCIFEROL
     Route: 040

REACTIONS (9)
  - Haemorrhagic cyst [Unknown]
  - Flank pain [Recovering/Resolving]
  - Abdominal distension [Unknown]
  - Congenital cystic kidney disease [Unknown]
  - Body temperature increased [Recovered/Resolved]
  - Abdominal pain [Recovering/Resolving]
  - Neoplasm malignant [Unknown]
  - Swelling face [Recovering/Resolving]
  - Urine output decreased [Unknown]

NARRATIVE: CASE EVENT DATE: 201506
